FAERS Safety Report 24312730 (Version 1)
Quarter: 2024Q3

REPORT INFORMATION
  Report Type: Spontaneous
  Country: FR (occurrence: FR)
  Receive Date: 20240912
  Receipt Date: 20240912
  Transmission Date: 20241016
  Serious: Yes (Hospitalization)
  Sender: Waylis
  Company Number: None

PATIENT
  Age: 20 Year
  Sex: Female
  Weight: 80 kg

DRUGS (3)
  1. DIAZEPAM [Suspect]
     Active Substance: DIAZEPAM
     Indication: Toxicity to various agents
     Dosage: 5MG
     Route: 050
     Dates: start: 20240731, end: 20240831
  2. ALPRAZOLAM [Suspect]
     Active Substance: ALPRAZOLAM
     Indication: Toxicity to various agents
     Dosage: 0,5MG
     Route: 050
     Dates: start: 20240731, end: 20240831
  3. QUETIAPINE [Suspect]
     Active Substance: QUETIAPINE
     Indication: Toxicity to various agents
     Dosage: LP 300MG
     Route: 050
     Dates: start: 20240731, end: 20240831

REACTIONS (4)
  - Toxicity to various agents [Recovered/Resolved]
  - Pneumonia aspiration [Recovered/Resolved]
  - Strabismus [Recovered/Resolved]
  - Coma [Recovered/Resolved]

NARRATIVE: CASE EVENT DATE: 20240731
